FAERS Safety Report 6828648-5 (Version None)
Quarter: 2010Q3

REPORT INFORMATION
  Report Type: 
  Country: None (occurrence: None)
  Receive Date: 20100709
  Receipt Date: 20070215
  Transmission Date: 20110219
  Serious: No
  Sender: FDA-Public Use
  Company Number: US-PFIZER INC-2007013678

PATIENT
  Sex: Female
  Weight: 49.9 kg

DRUGS (11)
  1. CHANTIX [Suspect]
     Indication: SMOKING CESSATION THERAPY
     Route: 048
     Dates: start: 20070101, end: 20070101
  2. BENICAR [Concomitant]
  3. FOSAMAX [Concomitant]
  4. SYMBICORT [Concomitant]
     Route: 055
  5. SPIRIVA [Concomitant]
  6. VITAMIN C [Concomitant]
  7. VITAMIN D [Concomitant]
  8. LOVAZA [Concomitant]
  9. CALCIUM WITH VITAMIN D [Concomitant]
  10. MAGNESIUM [Concomitant]
  11. ALL OTHER THERAPEUTIC PRODUCTS [Concomitant]

REACTIONS (1)
  - NAUSEA [None]
